FAERS Safety Report 9413193 (Version 1)
Quarter: 2013Q3

REPORT INFORMATION
  Report Type: Spontaneous
  Country: US (occurrence: US)
  Receive Date: 20130722
  Receipt Date: 20130722
  Transmission Date: 20140515
  Serious: No
  Sender: FDA-Public Use
  Company Number: US-PFIZER INC-2013113254

PATIENT
  Age: 86 Year
  Sex: Male
  Weight: 68.5 kg

DRUGS (2)
  1. NORVASC [Suspect]
     Indication: HYPERTENSION
     Dosage: UNK, 1X/DAY
     Dates: start: 201304, end: 20130715
  2. NORVASC [Suspect]
     Dosage: 7.5 MG, 1X/DAY (TAKING ONE AND HALF OF 5 MG TABLET AT NIGHT DAILY)
     Dates: start: 201304

REACTIONS (3)
  - Tachyphrenia [Unknown]
  - Insomnia [Unknown]
  - Feeling abnormal [Unknown]
